FAERS Safety Report 11127356 (Version 1)
Quarter: 2015Q2

REPORT INFORMATION
  Report Type: Spontaneous
  Country: US (occurrence: None)
  Receive Date: 20150519
  Receipt Date: 20150519
  Transmission Date: 20150821
  Serious: Yes (Other)
  Sender: FDA-Public Use
  Company Number: US-2015-1495

PATIENT
  Age: 1 Year
  Sex: Female
  Weight: 8.6 kg

DRUGS (1)
  1. HEMANGEOL [Suspect]
     Active Substance: PROPRANOLOL HYDROCHLORIDE
     Indication: INFANTILE HAEMANGIOMA
     Dosage: 1.3 ML, BID (2/DAY) FOR A WEEK
     Dates: start: 20150205, end: 201502

REACTIONS (3)
  - Pyrexia [None]
  - White blood cell count increased [None]
  - Febrile convulsion [None]

NARRATIVE: CASE EVENT DATE: 201502
